FAERS Safety Report 23186262 (Version 5)
Quarter: 2024Q2

REPORT INFORMATION
  Report Type: Spontaneous
  Country: PL (occurrence: None)
  Receive Date: 20231115
  Receipt Date: 20240610
  Transmission Date: 20240716
  Serious: Yes (Other)
  Sender: FDA-Public Use
  Company Number: PL-ROCHE-3456350

PATIENT
  Age: 37 Year
  Sex: Male

DRUGS (3)
  1. HEMLIBRA [Suspect]
     Active Substance: EMICIZUMAB-KXWH
     Indication: Product used for unknown indication
     Dosage: LAST DOSE 05/FEB/2024?(1 VIAL OF 105 MG + 2 VIALS OF 60 MG)
     Route: 058
     Dates: start: 20231002
  2. AUGMENTIN [Concomitant]
     Active Substance: AMOXICILLIN\CLAVULANATE POTASSIUM
     Indication: Upper respiratory tract infection
     Dosage: 2 X 875 MG+ 125 MG
     Dates: start: 20240118
  3. AUGMENTIN [Concomitant]
     Active Substance: AMOXICILLIN\CLAVULANATE POTASSIUM
     Dosage: 2 X 875 MG+ 125 MG
     Dates: start: 20240127

REACTIONS (4)
  - Spinal stroke [Unknown]
  - Spontaneous haemorrhage [Unknown]
  - Muscle haemorrhage [Unknown]
  - Haemorrhage [Unknown]

NARRATIVE: CASE EVENT DATE: 20231014
